FAERS Safety Report 14204808 (Version 3)
Quarter: 2018Q1

REPORT INFORMATION
  Report Type: Spontaneous
  Country: US (occurrence: US)
  Receive Date: 20171120
  Receipt Date: 20180222
  Transmission Date: 20180508
  Serious: No
  Sender: FDA-Public Use
  Company Number: US-GLAXOSMITHKLINE-US2017GSK176080

PATIENT
  Age: 36 Year
  Sex: Female
  Weight: 47.62 kg

DRUGS (1)
  1. SUMATRIPTAN (SUMATRIPTAN SUCCINATE) SOLUTION FOR INJECTION IN PRE-FILL [Suspect]
     Active Substance: SUMATRIPTAN
     Indication: MIGRAINE
     Dosage: 6 MG, UNK
     Route: 058

REACTIONS (4)
  - Underdose [Unknown]
  - Migraine [Unknown]
  - Drug dose omission [Unknown]
  - Product quality issue [Unknown]

NARRATIVE: CASE EVENT DATE: 20171112
